FAERS Safety Report 16920720 (Version 7)
Quarter: 2020Q2

REPORT INFORMATION
  Report Type: Spontaneous
  Country: CZ (occurrence: CZ)
  Receive Date: 20191015
  Receipt Date: 20200630
  Transmission Date: 20200713
  Serious: Yes (Life-Threatening)
  Sender: FDA-Public Use
  Company Number: PHHY2019CZ227778

PATIENT
  Age: 60 Year
  Sex: Male

DRUGS (9)
  1. PREDNISOLONE. [Suspect]
     Active Substance: PREDNISOLONE
     Indication: CHRONIC LYMPHOCYTIC LEUKAEMIA
     Dosage: UNK
     Route: 065
     Dates: start: 2018
  2. VINCRISTINE [Suspect]
     Active Substance: VINCRISTINE
     Indication: RICHTER^S SYNDROME
  3. DOXIL [Suspect]
     Active Substance: DOXORUBICIN HYDROCHLORIDE
     Indication: RICHTER^S SYNDROME
  4. PREDNISOLONE. [Suspect]
     Active Substance: PREDNISOLONE
     Indication: RICHTER^S SYNDROME
  5. ENDOXAN [Suspect]
     Active Substance: CYCLOPHOSPHAMIDE
     Indication: CHRONIC LYMPHOCYTIC LEUKAEMIA
     Dosage: 1 G
     Route: 065
     Dates: start: 2018
  6. VINCRISTINE [Suspect]
     Active Substance: VINCRISTINE
     Indication: CHRONIC LYMPHOCYTIC LEUKAEMIA
     Dosage: UNK
     Route: 065
     Dates: start: 2018
  7. RITUXIMAB. [Suspect]
     Active Substance: RITUXIMAB
     Indication: CHRONIC LYMPHOCYTIC LEUKAEMIA
     Dosage: UNK
     Route: 065
     Dates: start: 2018
  8. RITUXIMAB. [Suspect]
     Active Substance: RITUXIMAB
     Indication: RICHTER^S SYNDROME
  9. DOXIL [Suspect]
     Active Substance: DOXORUBICIN HYDROCHLORIDE
     Indication: CHRONIC LYMPHOCYTIC LEUKAEMIA
     Dosage: UNK
     Route: 065
     Dates: start: 2018

REACTIONS (5)
  - Chronic lymphocytic leukaemia transformation [Unknown]
  - Malignant neoplasm progression [Unknown]
  - Off label use [Unknown]
  - Neutropenic sepsis [Unknown]
  - Product use in unapproved indication [Unknown]

NARRATIVE: CASE EVENT DATE: 2018
